FAERS Safety Report 22312385 (Version 2)
Quarter: 2023Q2

REPORT INFORMATION
  Report Type: Report from Study
  Country: BE (occurrence: BE)
  Receive Date: 20230512
  Receipt Date: 20230519
  Transmission Date: 20230721
  Serious: No
  Sender: FDA-Public Use
  Company Number: BE-ABBVIE-4763892

PATIENT
  Sex: Male
  Weight: 89 kg

DRUGS (13)
  1. CARBIDOPA\LEVODOPA [Suspect]
     Active Substance: CARBIDOPA\LEVODOPA
     Indication: Parkinson^s disease
     Dosage: MD 10.0 ML, CD 4.5 ML/H ED 4.0 ML, REMAINS AT 16
     Route: 050
     Dates: start: 20221208, end: 20221221
  2. CARBIDOPA\LEVODOPA [Suspect]
     Active Substance: CARBIDOPA\LEVODOPA
     Dosage: MD 10.0 ML, CD 4.8 ML/H ED 4.0 ML, REMAINS AT 16
     Route: 050
     Dates: start: 20230321
  3. CARBIDOPA\LEVODOPA [Suspect]
     Active Substance: CARBIDOPA\LEVODOPA
     Dosage: MD 10.0 ML, CD 3.9 ML/H ED 3.0 ML, REMAINS AT 16
     Route: 050
     Dates: start: 20221010, end: 20221013
  4. CARBIDOPA\LEVODOPA [Suspect]
     Active Substance: CARBIDOPA\LEVODOPA
     Dosage: MD 10.0 ML, CD 3.5 ML/H ED 3.0 ML, REMAINS AT 16
     Route: 050
     Dates: start: 20221007, end: 20221010
  5. CARBIDOPA\LEVODOPA [Suspect]
     Active Substance: CARBIDOPA\LEVODOPA
     Dosage: MD 10.0 ML, CD 4.4 ML/H ED 4.0 ML, REMAINS AT 16
     Route: 050
     Dates: start: 20221128, end: 20221208
  6. CARBIDOPA\LEVODOPA [Suspect]
     Active Substance: CARBIDOPA\LEVODOPA
     Dosage: MD 10.0 ML, CD 4.0 ML/H ED 3.0 ML, REMAINS AT 16
     Route: 050
     Dates: start: 20221017, end: 20221024
  7. CARBIDOPA\LEVODOPA [Suspect]
     Active Substance: CARBIDOPA\LEVODOPA
     Dosage: MD 10.0 ML, CD 4.4 ML/H  ED 3.5 ML, REMAINS AT 16
     Route: 050
     Dates: start: 20221109, end: 20221128
  8. CARBIDOPA\LEVODOPA [Suspect]
     Active Substance: CARBIDOPA\LEVODOPA
     Dosage: REMAINS AT 16
     Route: 050
     Dates: start: 20221006
  9. CARBIDOPA\LEVODOPA [Suspect]
     Active Substance: CARBIDOPA\LEVODOPA
     Dosage: MD 100 ML, CD 4,6 ML/H ED 4.0 ML, REMAINS AT 16
     Route: 050
     Dates: start: 20221221, end: 20230223
  10. CARBIDOPA\LEVODOPA [Suspect]
     Active Substance: CARBIDOPA\LEVODOPA
     Dosage: MD 10.0 ML, CD 4.7 ML/H ED 4.0 ML, REMAINS AT 16
     Route: 050
     Dates: start: 20230223, end: 20230321
  11. CARBIDOPA\LEVODOPA [Suspect]
     Active Substance: CARBIDOPA\LEVODOPA
     Dosage: MD 10.0 ML,  CD 3.9 ML/H ED 3.0 ML, REMAINS AT 16
     Dates: start: 20221013, end: 20221017
  12. CARBIDOPA\LEVODOPA [Suspect]
     Active Substance: CARBIDOPA\LEVODOPA
     Dosage: MD 10.0 ML, CD 4.2 ML/H ED 3.0 ML, REMAINS AT 16
     Route: 050
     Dates: start: 20221024, end: 20221109
  13. XARELTO [Concomitant]
     Active Substance: RIVAROXABAN
     Indication: Anticoagulant therapy
     Route: 048

REACTIONS (1)
  - Rehabilitation therapy [Unknown]
